FAERS Safety Report 14876134 (Version 1)
Quarter: 2018Q2

REPORT INFORMATION
  Report Type: Spontaneous
  Country: US (occurrence: US)
  Receive Date: 20180510
  Receipt Date: 20180510
  Transmission Date: 20180711
  Serious: No
  Sender: FDA-Public Use
  Company Number: US-009507513-1805USA003375

PATIENT
  Age: 22 Year
  Sex: Female

DRUGS (4)
  1. RITONAVIR. [Suspect]
     Active Substance: RITONAVIR
     Dosage: UNK; STARTED AT WEEK 22 OF GESTATIONAL PERIOD; TOTAL DAILY DOSE: 200 (UNITS UNSPECIFIED)
     Route: 048
  2. ISENTRESS [Suspect]
     Active Substance: RALTEGRAVIR POTASSIUM
     Dosage: UNK; STARTED AT WEEK 22 OF GESTATIONAL PERIOD; TOTAL DAILY DOSE: 800 (UNITS UNSPECIFIED)
     Route: 048
  3. DARUNAVIR [Suspect]
     Active Substance: DARUNAVIR
     Dosage: UNK; STARTED AT WEEK 22 OF GESTATIONAL PERIOD; TOTAL DAILY DOSE: 2 (UNITS UNSPECIFIED)
     Route: 048
  4. EMTRICITABINE (+) TENOFOVIR DISOPROXIL FUMARATE [Suspect]
     Active Substance: EMTRICITABINE\TENOFOVIR DISOPROXIL
     Dosage: UNK; STARTED AT WEEK 22 OF GESTATIONAL PERIOD; TOTAL DAILY DOSE: 1 (UNITS UNSPECIFIED)
     Route: 048

REACTIONS (2)
  - Maternal exposure during pregnancy [Recovered/Resolved]
  - No adverse event [Unknown]
